FAERS Safety Report 6324047-3 (Version None)
Quarter: 2009Q3

REPORT INFORMATION
  Report Type: 
  Country: None (occurrence: None)
  Receive Date: 20090824
  Receipt Date: 20090417
  Transmission Date: 20100115
  Serious: No
  Sender: FDA-Public Use
  Company Number: US-ABBOTT-09P-163-0569125-00

PATIENT
  Sex: Female

DRUGS (7)
  1. NIASPAN [Suspect]
     Indication: PERIPHERAL VASCULAR DISORDER
     Route: 048
     Dates: start: 20090407
  2. CILOSTAZOL [Suspect]
     Indication: DRUG USE FOR UNKNOWN INDICATION
     Route: 048
     Dates: start: 20090407
  3. ASPIRIN [Concomitant]
     Indication: DRUG USE FOR UNKNOWN INDICATION
  4. SYNTHROID [Concomitant]
     Indication: DRUG USE FOR UNKNOWN INDICATION
     Route: 048
  5. METOPROLOL [Concomitant]
     Indication: DRUG USE FOR UNKNOWN INDICATION
     Route: 048
  6. ALDACTAZIDE [Concomitant]
     Indication: DRUG USE FOR UNKNOWN INDICATION
     Route: 048
  7. CYCLOBENZAPRINE [Concomitant]
     Indication: DRUG USE FOR UNKNOWN INDICATION
     Route: 048

REACTIONS (4)
  - ASTHENIA [None]
  - DIARRHOEA [None]
  - FAECAL INCONTINENCE [None]
  - TREMOR [None]
